FAERS Safety Report 22305052 (Version 2)
Quarter: 2023Q2

REPORT INFORMATION
  Report Type: Report from Study
  Country: CN (occurrence: CN)
  Receive Date: 20230510
  Receipt Date: 20230518
  Transmission Date: 20230722
  Serious: Yes (Death, Hospitalization, Other)
  Sender: FDA-Public Use
  Company Number: CN-ZENITH EPIGENETICS LTD.-2023ZEN000027

PATIENT
  Age: 47 Year
  Sex: Female

DRUGS (8)
  1. TALAZOPARIB [Suspect]
     Active Substance: TALAZOPARIB
     Indication: Triple negative breast cancer
     Dosage: 0.75 MILLIGRAM, DAILY
     Route: 048
     Dates: start: 20230329
  2. ZEN-003694 [Suspect]
     Active Substance: ZEN-003694
     Indication: Triple negative breast cancer
     Dosage: 48 MILLIGRAM, DAILY
     Route: 048
     Dates: start: 20230329
  3. ESOMEPRAZOLE MAGNESIUM [Concomitant]
     Active Substance: ESOMEPRAZOLE MAGNESIUM
     Indication: Dysphagia
     Dosage: 20 MILLIGRAM, DAILY
     Route: 048
     Dates: start: 20230403
  4. MOSAPRIDE CITRATE [Concomitant]
     Active Substance: MOSAPRIDE CITRATE
     Indication: Vomiting
     Dosage: 5 MILLIGRAM, 3 TIMES DAILY
     Route: 048
     Dates: start: 20230403
  5. ENTERAL NUTRITIONAL (TP) [Concomitant]
     Indication: Nutritional supplementation
     Dosage: 55.8 GRAM, 3 TIMES DAILY (POWDER)
     Route: 048
     Dates: start: 20230403
  6. METHYLCOBALAMIN [Concomitant]
     Active Substance: METHYLCOBALAMIN
     Indication: Fatigue
     Dosage: 0.5 MILLIGRAM, 3 TIMES DAILY
     Route: 048
     Dates: start: 20230407
  7. COMPOUND VITAMIN B [CALCIUM PANTOTHENATE;NICOTINAMIDE;PYRIDOXINE HYDRO [Concomitant]
     Indication: Fatigue
     Dosage: 2 DOSAGE FORM, 3 TIMES DAILY
     Route: 048
     Dates: start: 20230407
  8. HEROMBOPAG OLAMINE [Concomitant]
     Dosage: UNK

REACTIONS (3)
  - Infection [Not Recovered/Not Resolved]
  - Thrombocytopenia [Not Recovered/Not Resolved]
  - Multiple organ dysfunction syndrome [Fatal]

NARRATIVE: CASE EVENT DATE: 20230412
